FAERS Safety Report 7610543-5 (Version None)
Quarter: 2011Q3

REPORT INFORMATION
  Report Type: 
  Country: None (occurrence: None)
  Receive Date: 20110715
  Receipt Date: 20110707
  Transmission Date: 20111222
  Serious: Yes (Other)
  Sender: FDA-Public Use
  Company Number: DE-TEVA-259021GER

PATIENT
  Age: 58 Year
  Sex: Male
  Weight: 90 kg

DRUGS (3)
  1. RAMIPRIL [Concomitant]
  2. TAMSULOSIN HCL [Suspect]
     Indication: BENIGN PROSTATIC HYPERPLASIA
     Dosage: .4 MILLIGRAM;
     Route: 048
     Dates: start: 20101104, end: 20101105
  3. METFORMIN HCL [Concomitant]

REACTIONS (14)
  - DIZZINESS [None]
  - HEART RATE DECREASED [None]
  - DIARRHOEA [None]
  - HEADACHE [None]
  - ASTHENIA [None]
  - EPISTAXIS [None]
  - THOUGHT INSERTION [None]
  - VISUAL ACUITY REDUCED [None]
  - HEPATIC CIRRHOSIS [None]
  - MOVEMENT DISORDER [None]
  - DECREASED APPETITE [None]
  - CHEST DISCOMFORT [None]
  - DISTURBANCE IN ATTENTION [None]
  - CHROMATURIA [None]
